FAERS Safety Report 9835100 (Version 2)
Quarter: 2014Q1

REPORT INFORMATION
  Report Type: Spontaneous
  Country: ES (occurrence: ES)
  Receive Date: 20140122
  Receipt Date: 20140213
  Transmission Date: 20141002
  Serious: Yes (Death, Other)
  Sender: FDA-Public Use
  Company Number: ES-OTSUKA-US-2014-10113

PATIENT
  Sex: 0

DRUGS (6)
  1. BUSULFEX [Suspect]
     Indication: STEM CELL TRANSPLANT
     Dosage: 3.2 MG/KG, 1-2 DAYS
     Route: 042
  2. FLUDARABINE [Suspect]
     Indication: STEM CELL TRANSPLANT
     Dosage: 30 MG/M2, UNK
     Route: 065
  3. CYCLOPHOSPHAMIDE [Suspect]
     Indication: STEM CELL TRANSPLANT
     Dosage: 14.5 MG/KG, UNK
     Route: 065
  4. CYCLOSPORIN [Concomitant]
     Dosage: UNK
  5. CALCINEURIN INHIBITORS [Concomitant]
     Dosage: UNK
  6. MYCOPHENOLATE MOFETIL [Concomitant]
     Dosage: UNK

REACTIONS (8)
  - Death [Fatal]
  - Hodgkin^s disease recurrent [Unknown]
  - Malignant neoplasm progression [Unknown]
  - Cytomegalovirus infection [Unknown]
  - Acute graft versus host disease [Unknown]
  - Chronic graft versus host disease [Unknown]
  - Febrile neutropenia [Unknown]
  - Mucosal inflammation [Unknown]
